FAERS Safety Report 14773152 (Version 6)
Quarter: 2019Q3

REPORT INFORMATION
  Report Type: Report from Study
  Country: BR (occurrence: BR)
  Receive Date: 20180418
  Receipt Date: 20190917
  Transmission Date: 20191004
  Serious: Yes (Life-Threatening, Hospitalization, Other)
  Sender: FDA-Public Use
  Company Number: BR-ROCHE-1962294

PATIENT
  Sex: Female
  Weight: 76.5 kg

DRUGS (39)
  1. SPIRONOLACTONE. [Concomitant]
     Active Substance: SPIRONOLACTONE
     Indication: DYSPNOEA
     Dosage: 25 MG, BID (STARTED USING MORE THAN 10 YEARS AGO)
     Route: 048
  2. AMITRIPTYLINE [Concomitant]
     Active Substance: AMITRIPTYLINE
     Indication: ANXIETY
     Dosage: 25 MG, BID (STARTED USING A LONG TIME AGO)
     Route: 048
  3. BUDESONIDE. [Concomitant]
     Active Substance: BUDESONIDE
     Indication: RHINITIS ALLERGIC
     Dosage: 2 DF, (IN EACH NOSTRIL EVERY 4 HOURS)
     Route: 055
  4. XOLAIR [Suspect]
     Active Substance: OMALIZUMAB
     Indication: ASTHMA
     Dosage: EVERY 28 DAYS (BEGAN USING 5 YEARS AGO)
     Route: 058
     Dates: start: 20120101
  5. FORMOTEROL [Concomitant]
     Active Substance: FORMOTEROL
     Indication: HYPERSENSITIVITY
     Route: 065
  6. ALENIA [BUDESONIDE;FORMOTEROL FUMARATE] [Concomitant]
     Indication: ASTHMA
     Route: 065
  7. METICORTEN [Concomitant]
     Active Substance: PREDNISONE
     Indication: ASTHMA
     Route: 065
  8. SIMVASTATIN. [Concomitant]
     Active Substance: SIMVASTATIN
     Indication: BLOOD CHOLESTEROL INCREASED
     Dosage: 2 DF, QD (OVER 10 YEARS AGO)
     Route: 048
  9. AMLODIPINE [Concomitant]
     Active Substance: AMLODIPINE BESYLATE
     Indication: HYPERTENSION
     Dosage: 4 DF, QD (OVER 20 YEARS AGO)
     Route: 048
  10. SYMBICORT [Concomitant]
     Active Substance: BUDESONIDE\FORMOTEROL FUMARATE DIHYDRATE
     Indication: ASTHMA
     Dosage: 2 DF, Q12H
     Route: 055
  11. XOLAIR [Suspect]
     Active Substance: OMALIZUMAB
     Dosage: UNK
     Route: 058
     Dates: start: 20170118
  12. NIFEDIPINE. [Concomitant]
     Active Substance: NIFEDIPINE
     Indication: HEART RATE DECREASED
     Dosage: 25 MG, BID (15 YEARS)
     Route: 048
  13. GARDENALE [Concomitant]
     Active Substance: PHENOBARBITAL
     Indication: DEPRESSION
     Route: 065
  14. AMITRIPTYLINE [Concomitant]
     Active Substance: AMITRIPTYLINE
     Indication: DEPRESSION
     Dosage: 2 DF, QD (OVER 20 YEARS AGO)
     Route: 048
  15. SALBUTAMOL [Concomitant]
     Active Substance: ALBUTEROL
     Indication: ASTHMA
     Route: 065
  16. METICORTEN [Concomitant]
     Active Substance: PREDNISONE
     Indication: HYPERSENSITIVITY
     Dosage: 2 DF,  (2 SPRAYS EVERY 12 HOURS)
     Route: 055
  17. AMINOPHYLLINE. [Concomitant]
     Active Substance: AMINOPHYLLINE
     Indication: ASTHMA
     Dosage: 2 DF, QD IF THERE IS AN EPISODE, 3 TABLETS A DAY) (12 YEARS AGO)
     Route: 048
  18. XOLAIR [Suspect]
     Active Substance: OMALIZUMAB
     Indication: HYPERSENSITIVITY
     Dosage: UNK
     Route: 058
     Dates: start: 20170408, end: 20170408
  19. XOLAIR [Suspect]
     Active Substance: OMALIZUMAB
     Dosage: UNK
     Route: 058
     Dates: start: 201710
  20. PREDNISOLONE. [Concomitant]
     Active Substance: PREDNISOLONE
     Dosage: 1 DF, QD
     Route: 048
  21. SALBUTAMOL [Concomitant]
     Active Substance: ALBUTEROL
     Indication: HYPERSENSITIVITY
     Dosage: 3 DF, EVERY FOUR WEEKS STARTED THE USE MORE THAN 10 YEARS AGO
     Route: 055
  22. SYMBICORT [Concomitant]
     Active Substance: BUDESONIDE\FORMOTEROL FUMARATE DIHYDRATE
     Dosage: 2 DF, QD (OVER 20 YEARS AGO)
     Route: 055
  23. AEROLIN [Concomitant]
     Active Substance: ALBUTEROL
     Indication: ASTHMA
     Dosage: 2 DF, QD (OVER 20 YEARS AGO)
     Route: 055
  24. XOLAIR [Suspect]
     Active Substance: OMALIZUMAB
     Dosage: UNK
     Route: 058
     Dates: start: 20180315
  25. FUROSEMIDE. [Concomitant]
     Active Substance: FUROSEMIDE
     Dosage: 50 MG, UNK (30 YEARS AGO)
     Route: 065
  26. LOSARTAN. [Concomitant]
     Active Substance: LOSARTAN
     Indication: HYPERTENSION
     Dosage: 2 DF, QD (OVER 20 YEARS AGO)
     Route: 048
  27. NIFEDIPINE. [Concomitant]
     Active Substance: NIFEDIPINE
     Indication: HYPERTENSION
     Route: 065
  28. PREDNISOLONE. [Concomitant]
     Active Substance: PREDNISOLONE
     Indication: DYSPNOEA
     Dosage: 2 DF, QD
     Route: 048
  29. SPIRONOLACTONE. [Concomitant]
     Active Substance: SPIRONOLACTONE
     Indication: ASTHMA
     Route: 065
  30. FORMOTEROL [Concomitant]
     Active Substance: FORMOTEROL
     Indication: ASTHMA
     Dosage: 400 MG, BID (EVERY 12 HOURS) STARTED USING OVER FIVE YEARS AGO
     Route: 055
  31. ALENIA [BUDESONIDE;FORMOTEROL FUMARATE] [Concomitant]
     Indication: HYPERSENSITIVITY
     Dosage: 2 DF, (SPRAY) EVERY 12 HOURS
     Route: 055
  32. FUROSEMIDE. [Concomitant]
     Active Substance: FUROSEMIDE
     Indication: HEART RATE DECREASED
     Dosage: 30 YEARS AGO
     Route: 048
  33. FUROSEMIDE. [Concomitant]
     Active Substance: FUROSEMIDE
     Indication: HYPERTENSION
     Dosage: 2 DF, QD (OVER 20 YEARS AGO)
     Route: 048
  34. LOSARTAN. [Concomitant]
     Active Substance: LOSARTAN
     Indication: HEART RATE DECREASED
     Dosage: 50 MG, BID ( 12 YEARS)
     Route: 048
  35. OXYGEN. [Concomitant]
     Active Substance: OXYGEN
     Indication: PRODUCT USED FOR UNKNOWN INDICATION
     Route: 065
  36. XOLAIR [Suspect]
     Active Substance: OMALIZUMAB
     Dosage: UNK
     Route: 058
     Dates: start: 20171101
  37. GARDENALE [Concomitant]
     Active Substance: PHENOBARBITAL
     Indication: DEPRESSION
     Dosage: 1 DF, QD (19 YEARS)
     Route: 048
  38. BUDESONIDE. [Concomitant]
     Active Substance: BUDESONIDE
     Indication: ASTHMA
     Dosage: 2 DF, QD (OVER 20 YEARS AGO)
     Route: 055
  39. PHENOBARBITAL. [Concomitant]
     Active Substance: PHENOBARBITAL
     Indication: PRESYNCOPE
     Dosage: 2 DF, QD (OVER 20 YEARS AGO)
     Route: 048

REACTIONS (21)
  - Pneumonia [Unknown]
  - Blood pressure increased [Recovering/Resolving]
  - Seizure [Unknown]
  - Asthenia [Unknown]
  - Product use in unapproved indication [Unknown]
  - Peripheral swelling [Recovering/Resolving]
  - Sensitivity to weather change [Recovering/Resolving]
  - Confusional state [Unknown]
  - Malaise [Recovering/Resolving]
  - Obesity [Unknown]
  - Asthmatic crisis [Not Recovered/Not Resolved]
  - Asthma [Recovering/Resolving]
  - Gait disturbance [Unknown]
  - Heart rate increased [Recovering/Resolving]
  - Skin discolouration [Recovering/Resolving]
  - Blindness [Not Recovered/Not Resolved]
  - Swelling [Unknown]
  - Apparent death [Unknown]
  - Immunodeficiency [Unknown]
  - Cardiac disorder [Recovering/Resolving]
  - Dyspnoea [Recovering/Resolving]
